FAERS Safety Report 5881101-8 (Version None)
Quarter: 2008Q3

REPORT INFORMATION
  Report Type: 
  Country: None (occurrence: None)
  Receive Date: 20080912
  Receipt Date: 20080618
  Transmission Date: 20090109
  Serious: No
  Sender: FDA-Public Use
  Company Number: US-ABBOTT-08P-163-0458580-00

PATIENT
  Sex: Female
  Weight: 54.48 kg

DRUGS (6)
  1. HUMIRA [Suspect]
     Indication: CROHN'S DISEASE
     Route: 058
     Dates: start: 20080301
  2. CENTRUM SILVER [Concomitant]
     Indication: VITAMIN SUPPLEMENTATION
     Route: 048
  3. MAGNESIUM SULFATE [Concomitant]
     Indication: MINERAL SUPPLEMENTATION
     Route: 048
     Dates: start: 20071101
  4. CYANOCOBALAMIN [Concomitant]
     Indication: VITAMIN SUPPLEMENTATION
     Route: 048
     Dates: start: 20071101
  5. ERGOCALCIFEROL [Concomitant]
     Indication: VITAMIN SUPPLEMENTATION
     Route: 048
     Dates: start: 20071101
  6. OSCAL [Concomitant]
     Indication: MINERAL SUPPLEMENTATION
     Route: 048
     Dates: start: 20071101

REACTIONS (3)
  - LOCALISED INFECTION [None]
  - SCRATCH [None]
  - WOUND HAEMORRHAGE [None]
